FAERS Safety Report 12421884 (Version 1)
Quarter: 2016Q2

REPORT INFORMATION
  Report Type: Spontaneous
  Country: US (occurrence: US)
  Receive Date: 20160531
  Receipt Date: 20160531
  Transmission Date: 20160815
  Serious: Yes (Other)
  Sender: FDA-Public Use
  Company Number: US-PFIZER INC-2598824

PATIENT
  Age: 5 Year
  Sex: Male
  Weight: 19 kg

DRUGS (10)
  1. CYTOGAM [Suspect]
     Active Substance: HUMAN CYTOMEGALOVIRUS IMMUNE GLOBULIN
     Indication: CYTOMEGALOVIRUS INFECTION
     Dosage: 150 MG/KG FOLLOWED BY 100 MG/KG, FREQ: 1 HOUR; INTERVAL: 1
     Route: 042
     Dates: start: 20140725, end: 20140925
  2. GANCICLOVIR. [Suspect]
     Active Substance: GANCICLOVIR
     Indication: CYTOMEGALOVIRUS INFECTION
     Dosage: 5 MG/KG, 2X/DAY (EVERY 12 HOURS)
     Route: 042
     Dates: start: 20140715, end: 20140725
  3. FOSCARNET SODIUM. [Suspect]
     Active Substance: FOSCARNET SODIUM
     Dosage: 60 MG/KG, 3X/DAY (EVERY 8 HOURS)
     Route: 042
     Dates: start: 20140915
  4. GANCICLOVIR. [Suspect]
     Active Substance: GANCICLOVIR
     Dosage: 7.5 MG/KG, 1X/DAY (EVERY 24 HOURS)
     Route: 042
     Dates: start: 20140830, end: 20140901
  5. GANCICLOVIR. [Suspect]
     Active Substance: GANCICLOVIR
     Dosage: 7.5 MG/KG, 1X/DAY (EVERY 24 HOURS)
     Route: 042
     Dates: start: 20140922, end: 20140929
  6. FOSCARNET SODIUM. [Suspect]
     Active Substance: FOSCARNET SODIUM
     Dosage: 60 MG/KG, 3X/DAY (EVERY 8 HOURS)
     Route: 042
     Dates: start: 20140801, end: 20140901
  7. FOSCARNET SODIUM. [Suspect]
     Active Substance: FOSCARNET SODIUM
     Indication: CYTOMEGALOVIRUS VIRAEMIA
     Dosage: 90 MG/KG, 2X/DAY (EVERY 12 HOURS)
     Route: 042
     Dates: start: 20140701, end: 20140715
  8. GANCICLOVIR. [Suspect]
     Active Substance: GANCICLOVIR
     Dosage: 7.5 MG/KG, 2X/DAY (EVERY 12 HOURS)
     Route: 042
     Dates: start: 20140929
  9. FOSCARNET SODIUM. [Suspect]
     Active Substance: FOSCARNET SODIUM
     Dosage: 45 MG/KG, 3X/DAY (EVERY 8 HOURS)
     Route: 042
     Dates: start: 20140901, end: 20140915
  10. GANCICLOVIR. [Suspect]
     Active Substance: GANCICLOVIR
     Dosage: 7.5 MG/KG, 2X/DAY (EVERY 12 HOURS)
     Route: 042
     Dates: start: 20140725, end: 20140830

REACTIONS (7)
  - Memory impairment [Not Recovered/Not Resolved]
  - Drug resistance [Unknown]
  - Cystitis haemorrhagic [Unknown]
  - Treatment failure [Not Recovered/Not Resolved]
  - Nervous system disorder [Not Recovered/Not Resolved]
  - Renal impairment [Recovering/Resolving]
  - Cytomegalovirus chorioretinitis [Not Recovered/Not Resolved]

NARRATIVE: CASE EVENT DATE: 201407
